FAERS Safety Report 8063190-8 (Version None)
Quarter: 2012Q1

REPORT INFORMATION
  Report Type: 
  Country: None (occurrence: None)
  Receive Date: 20120123
  Receipt Date: 20120116
  Transmission Date: 20120608
  Serious: Yes (Death, Hospitalization)
  Sender: FDA-Public Use
  Company Number: PHHO2011BE020177

PATIENT
  Sex: Male
  Weight: 82.3 kg

DRUGS (9)
  1. ALISKIREN [Suspect]
     Indication: CARDIOVASCULAR DISORDER
     Dosage: 300 MG, UNK
     Route: 048
     Dates: start: 20090309
  2. HYDROCHLOROTHIAZIDE [Concomitant]
     Indication: CARDIOVASCULAR DISORDER
     Dosage: UNK
     Route: 048
  3. BISOPROLOL [Concomitant]
     Indication: CARDIOVASCULAR DISORDER
     Dosage: UNK
     Route: 048
  4. FENOFIBRATE [Concomitant]
     Indication: CARDIOVASCULAR DISORDER
     Dosage: UNK
     Route: 048
  5. AMLODIPINE [Concomitant]
     Indication: CARDIOVASCULAR DISORDER
     Dosage: UNK
     Route: 048
  6. MOXONIDINE [Concomitant]
     Indication: CARDIOVASCULAR DISORDER
     Dosage: UNK
     Route: 048
  7. INSULIN INSULATARD NPH NORDISK [Concomitant]
     Indication: TYPE 2 DIABETES MELLITUS
     Dosage: 42 E P/D
     Route: 058
  8. INSULIN ACTRAPID [Concomitant]
     Indication: TYPE 2 DIABETES MELLITUS
     Dosage: 26 EP/D
     Route: 058
  9. LISINOPRIL [Concomitant]
     Indication: CARDIOVASCULAR DISORDER
     Dosage: UNK
     Route: 048

REACTIONS (2)
  - CONCOMITANT DISEASE PROGRESSION [None]
  - CHRONIC OBSTRUCTIVE PULMONARY DISEASE [None]
